FAERS Safety Report 24655307 (Version 1)
Quarter: 2024Q4

REPORT INFORMATION
  Report Type: Spontaneous
  Country: CA (occurrence: CA)
  Receive Date: 20241123
  Receipt Date: 20241123
  Transmission Date: 20250115
  Serious: Yes (Death, Life-Threatening, Hospitalization)
  Sender: ABBVIE
  Company Number: CA-ABBVIE-6017980

PATIENT
  Age: 78 Year
  Sex: Female

DRUGS (1)
  1. BOTOX [Suspect]
     Active Substance: ONABOTULINUMTOXINA
     Indication: Hypertonic bladder
     Dosage: TIME INTERVAL: AS NECESSARY
     Route: 051

REACTIONS (4)
  - Pyelonephritis [Fatal]
  - Hydronephrosis [Fatal]
  - Cardiac failure [Fatal]
  - Perinephric abscess [Fatal]
